FAERS Safety Report 7728656-6 (Version None)
Quarter: 2011Q3

REPORT INFORMATION
  Report Type: 
  Country: None (occurrence: None)
  Receive Date: 20110906
  Receipt Date: 20110824
  Transmission Date: 20111222
  Serious: Yes (Other)
  Sender: FDA-Public Use
  Company Number: GB-JNJFOC-20110802052

PATIENT
  Sex: Male

DRUGS (1)
  1. RISPERDAL CONSTA [Suspect]
     Indication: PRODUCT USED FOR UNKNOWN INDICATION
     Route: 030

REACTIONS (6)
  - INCORRECT DOSE ADMINISTERED [None]
  - ACCIDENTAL EXPOSURE [None]
  - DEVICE LEAKAGE [None]
  - DEVICE OCCLUSION [None]
  - FOREIGN BODY [None]
  - DEVICE MALFUNCTION [None]
